FAERS Safety Report 7141153-4 (Version None)
Quarter: 2010Q4

REPORT INFORMATION
  Report Type: 
  Country: None (occurrence: None)
  Receive Date: 20101203
  Receipt Date: 20101203
  Transmission Date: 20110411
  Serious: Yes (Death)
  Sender: FDA-Public Use
  Company Number: None

PATIENT
  Sex: Female

DRUGS (1)
  1. TRAMADOL HCL [Suspect]
     Indication: PAIN
     Dosage: 1/2 OF 50 2 X DAY
     Dates: start: 20100901, end: 20101024

REACTIONS (4)
  - CEREBROVASCULAR ACCIDENT [None]
  - HYPERSENSITIVITY [None]
  - SWOLLEN TONGUE [None]
  - WRONG TECHNIQUE IN DRUG USAGE PROCESS [None]
